FAERS Safety Report 21507490 (Version 1)
Quarter: 2022Q4

REPORT INFORMATION
  Report Type: Report from Study
  Country: US (occurrence: US)
  Receive Date: 20221026
  Receipt Date: 20221026
  Transmission Date: 20230112
  Serious: Yes (Other)
  Sender: FDA-Public Use
  Company Number: US-ViiV Healthcare Limited-US2022GSK151023

PATIENT

DRUGS (1)
  1. ABACAVIR SULFATE [Suspect]
     Active Substance: ABACAVIR SULFATE
     Indication: Antiretroviral therapy
     Dosage: UNK

REACTIONS (4)
  - Drug-induced liver injury [Unknown]
  - Acute hepatic failure [Unknown]
  - Hepatic encephalopathy [Unknown]
  - Coagulopathy [Unknown]
